FAERS Safety Report 9860030 (Version 2)
Quarter: 2014Q1

REPORT INFORMATION
  Report Type: Report from Study
  Country: CZ (occurrence: CZ)
  Receive Date: 20140131
  Receipt Date: 20140206
  Transmission Date: 20141002
  Serious: Yes (Hospitalization)
  Sender: FDA-Public Use
  Company Number: CZ-ASTRAZENECA-2014SE06249

PATIENT
  Age: 19808 Day
  Sex: Male
  Weight: 80 kg

DRUGS (1)
  1. AZD6140 [Suspect]
     Indication: PERIPHERAL ARTERIAL OCCLUSIVE DISEASE
     Route: 048
     Dates: start: 20131202, end: 20140127

REACTIONS (1)
  - Myocardial infarction [Recovered/Resolved]
